FAERS Safety Report 5070282-4 (Version None)
Quarter: 2006Q3

REPORT INFORMATION
  Report Type: 
  Country: None (occurrence: None)
  Receive Date: 20060731
  Receipt Date: 20060720
  Transmission Date: 20061208
  Serious: Yes (Hospitalization)
  Sender: FDA-Public Use
  Company Number: 227698

PATIENT
  Age: 57 Year
  Sex: Male

DRUGS (1)
  1. RAPTIVA [Suspect]
     Indication: PSORIASIS
     Dosage: 0.1 MG/KG, QD, SUBCUTANEOUS
     Route: 058
     Dates: start: 20051006, end: 20060620

REACTIONS (1)
  - RECTAL CANCER [None]
